FAERS Safety Report 5242147-6 (Version None)
Quarter: 2007Q1

REPORT INFORMATION
  Report Type: 
  Country: None (occurrence: None)
  Receive Date: 20070213
  Receipt Date: 20070131
  Transmission Date: 20070707
  Serious: Yes (Hospitalization)
  Sender: FDA-Public Use
  Company Number: 2007US000247

PATIENT
  Age: 52 Year
  Sex: Female

DRUGS (2)
  1. PROGRAF [Suspect]
     Indication: RENAL TRANSPLANT
     Dosage: BID, ORAL
     Route: 048
     Dates: start: 20050813, end: 20070126
  2. CELLCEPT [Concomitant]

REACTIONS (3)
  - DRUG TOXICITY [None]
  - ENDOCARDITIS [None]
  - LEUKOENCEPHALOPATHY [None]
